FAERS Safety Report 7437564-X (Version None)
Quarter: 2011Q2

REPORT INFORMATION
  Report Type: 
  Country: None (occurrence: None)
  Receive Date: 20110426
  Receipt Date: 20110418
  Transmission Date: 20111010
  Serious: Yes (Hospitalization)
  Sender: FDA-Public Use
  Company Number: NL-B.I. PHARMACEUTICALS,INC./RIDGEFIELD-2010-DE-02683DE

PATIENT
  Sex: Male
  Weight: 91 kg

DRUGS (10)
  1. DABIGATRAN [Suspect]
     Indication: CEREBROVASCULAR ACCIDENT PROPHYLAXIS
     Route: 048
     Dates: start: 20070905
  2. CARBASALAATCALCIUM [Concomitant]
     Indication: CEREBROVASCULAR ACCIDENT PROPHYLAXIS
     Dosage: 1 ANZ
     Route: 048
  3. BUMETANIDE [Concomitant]
     Indication: CARDIAC FAILURE
     Dosage: 1 ANZ
     Route: 048
  4. DABIGATRAN [Suspect]
     Indication: ATRIAL FIBRILLATION
  5. TRAVATAN [Concomitant]
     Indication: GLAUCOMA
     Dosage: 1 ANZ
     Route: 047
     Dates: start: 20100416
  6. NEBIVOLOL HCL [Concomitant]
     Indication: CARDIAC FAILURE
     Dosage: 1 ANZ
     Route: 048
     Dates: start: 20090114
  7. LYRICA [Concomitant]
     Indication: NEUROPATHY PERIPHERAL
     Dosage: 2 ANZ
     Route: 048
     Dates: start: 20100329
  8. PROTAGENS [Concomitant]
     Indication: GLAUCOMA
     Dosage: 2 ANZ
     Route: 047
     Dates: start: 20080812
  9. LACTULOSE [Concomitant]
     Indication: CONSTIPATION
     Dosage: 1 ANZ
     Route: 048
     Dates: start: 20081001
  10. LANOXIN [Concomitant]
     Indication: ATRIAL FIBRILLATION
     Dosage: 1 ANZ
     Route: 048

REACTIONS (1)
  - TRANSIENT ISCHAEMIC ATTACK [None]
